FAERS Safety Report 14927241 (Version 3)
Quarter: 2018Q2

REPORT INFORMATION
  Report Type: Spontaneous
  Country: US (occurrence: US)
  Receive Date: 20180523
  Receipt Date: 20180626
  Transmission Date: 20180711
  Serious: No
  Sender: FDA-Public Use
  Company Number: US-PFIZER INC-2018207079

PATIENT
  Age: 70 Year
  Sex: Female
  Weight: 75.75 kg

DRUGS (3)
  1. IBRANCE [Suspect]
     Active Substance: PALBOCICLIB
     Indication: BREAST CANCER METASTATIC
     Dosage: 125 MG, DAILY (WITH FOOD)
     Route: 048
     Dates: start: 201804
  2. FASLODEX [Concomitant]
     Active Substance: FULVESTRANT
     Dosage: 500 MG, MONTHLY
     Dates: start: 201804
  3. XGEVA [Concomitant]
     Active Substance: DENOSUMAB
     Dosage: UNK UNK, MONTHLY

REACTIONS (5)
  - Sinusitis [Recovered/Resolved]
  - Asthma [Unknown]
  - Condition aggravated [Unknown]
  - Drug dose omission [Unknown]
  - Pain in extremity [Recovered/Resolved]

NARRATIVE: CASE EVENT DATE: 201805
